FAERS Safety Report 17869929 (Version 1)
Quarter: 2020Q2

REPORT INFORMATION
  Report Type: Other
  Country: US (occurrence: US)
  Receive Date: 20200608
  Receipt Date: 20200608
  Transmission Date: 20200714
  Serious: Yes (Death, Congenital Anomaly)
  Sender: FDA-Public Use
  Company Number: US-MACLEODS PHARMACEUTICALS US LTD-MAC2020026728

PATIENT

DRUGS (2)
  1. EMTRICITABINE + TENOFOVIR [Suspect]
     Active Substance: EMTRICITABINE\TENOFOVIR
     Indication: PRODUCT USED FOR UNKNOWN INDICATION
     Dosage: UNK UNK, QD, TAB/CAPS, 1 COURSE
     Route: 064
     Dates: start: 20200413
  2. TIVICAY [Suspect]
     Active Substance: DOLUTEGRAVIR SODIUM
     Indication: PRODUCT USED FOR UNKNOWN INDICATION
     Dosage: 50 MILLIGRAM, QD, 1 COURSE
     Route: 064
     Dates: start: 20200413

REACTIONS (4)
  - Ascites [Fatal]
  - Foetal exposure during pregnancy [Fatal]
  - Cystic lymphangioma [Fatal]
  - Hydrops foetalis [Fatal]
